FAERS Safety Report 5264060-0 (Version None)
Quarter: 2007Q1

REPORT INFORMATION
  Report Type: 
  Country: None (occurrence: None)
  Receive Date: 20070313
  Receipt Date: 20070301
  Transmission Date: 20070707
  Serious: Yes (Hospitalization)
  Sender: FDA-Public Use
  Company Number: PL-PFIZER INC-2006109094

PATIENT
  Sex: Male
  Weight: 76 kg

DRUGS (10)
  1. SU-011,248 [Suspect]
     Indication: RENAL CELL CARCINOMA STAGE UNSPECIFIED
     Route: 048
  2. INDAPAMIDE [Concomitant]
  3. ENARENAL [Concomitant]
     Route: 048
     Dates: start: 20010615, end: 20060630
  4. CLONAZEPAM [Concomitant]
     Route: 048
     Dates: start: 20060301
  5. KETONAL [Concomitant]
     Route: 048
     Dates: start: 20051018, end: 20060925
  6. ACETYLSALICYLIC ACID SRT [Concomitant]
     Route: 048
     Dates: start: 20060624, end: 20061117
  7. METOHEXAL [Concomitant]
     Route: 048
     Dates: start: 20060624, end: 20060925
  8. METFORMAX [Concomitant]
     Route: 048
     Dates: start: 20060624, end: 20060925
  9. PRINIVIL [Concomitant]
     Route: 048
     Dates: start: 20060624
  10. OMEPRAZOLE [Concomitant]
     Route: 048
     Dates: start: 20060624

REACTIONS (2)
  - DIABETES MELLITUS [None]
  - VASCULAR INSUFFICIENCY [None]
